FAERS Safety Report 7311049-3 (Version None)
Quarter: 2011Q1

REPORT INFORMATION
  Report Type: 
  Country: None (occurrence: None)
  Receive Date: 20110224
  Receipt Date: 20110215
  Transmission Date: 20110831
  Serious: Yes (Other)
  Sender: FDA-Public Use
  Company Number: US-PFIZER INC-2010182606

PATIENT
  Sex: Female
  Weight: 72.109 kg

DRUGS (22)
  1. ACETYLSALICYLIC ACID [Concomitant]
     Indication: ANTICOAGULANT THERAPY
     Dosage: 81 MG, UNK
     Route: 048
  2. NASACORT AQ [Concomitant]
     Dosage: UNK
  3. LYRICA [Suspect]
     Indication: BONE DENSITY DECREASED
  4. LYRICA [Suspect]
     Indication: FIBROMYALGIA
     Dosage: UNK
     Route: 048
     Dates: start: 20090101, end: 20090101
  5. AVAPRO [Concomitant]
     Indication: HYPERTENSION
     Dosage: 150 MG, UNK
     Route: 048
  6. ATENOLOL [Concomitant]
     Indication: HEART RATE IRREGULAR
     Dosage: 50 MG, UNK
     Route: 048
  7. PLAVIX [Concomitant]
     Indication: MYOCARDIAL INFARCTION
     Dosage: 75 MG, UNK
     Route: 048
     Dates: start: 20090401
  8. PROMETHAZINE HYDROCHLORIDE [Concomitant]
     Dosage: 25 MG, 1X/DAY
     Route: 048
  9. ASCORBIC ACID [Concomitant]
     Dosage: 500 MG, UNK
  10. MELOXICAM [Concomitant]
     Indication: OSTEOARTHRITIS
     Dosage: 7.5 MG, UNK
     Route: 048
  11. LUTEIN [Concomitant]
     Indication: OCULAR VASCULAR DISORDER
     Dosage: UNK
  12. LYRICA [Suspect]
     Indication: OSTEOARTHRITIS
  13. SIMVASTATIN [Concomitant]
     Dosage: 80 MG, UNK
     Route: 048
  14. PREMARIN [Concomitant]
     Indication: OOPHORECTOMY
     Dosage: 1.25 MG, UNK
     Route: 048
  15. XANAX [Concomitant]
     Indication: NEUROPATHY PERIPHERAL
     Dosage: 0.5 MG, 3X/DAY
     Route: 048
  16. FLEXERIL [Concomitant]
     Indication: PAIN IN EXTREMITY
     Dosage: 10 MG, UNK
     Route: 048
  17. PREVACID [Concomitant]
     Indication: GASTRIC ULCER HAEMORRHAGE
     Dosage: 30 MG, UNK
     Route: 048
  18. DEMEROL [Concomitant]
     Indication: PAIN
     Dosage: 50 MG, 2X/DAY
  19. SYNTHROID [Concomitant]
     Indication: THYROID DISORDER
     Dosage: 0.88 UG, UNK
     Route: 048
  20. TERAZOSIN [Concomitant]
     Indication: HEART RATE IRREGULAR
     Dosage: 10 MG IN AM, 1X/DAY
     Route: 048
  21. POTASSIUM [Concomitant]
     Indication: HYPOKALAEMIA
     Dosage: 20 MG, UNK
     Route: 048
  22. PLAVIX [Concomitant]
     Indication: CEREBROVASCULAR ACCIDENT

REACTIONS (4)
  - SKIN FISSURES [None]
  - ERYTHEMA [None]
  - OEDEMA PERIPHERAL [None]
  - ECZEMA [None]
